FAERS Safety Report 9519024 (Version 1)
Quarter: 2013Q1

REPORT INFORMATION
  Report Type: Spontaneous
  Country: US (occurrence: None)
  Receive Date: 20130305
  Receipt Date: 20130305
  Transmission Date: 20140127
  Serious: Yes (Other)
  Sender: FDA-Public Use
  Company Number: 163-21880-12070813

PATIENT
  Age: 67 Year
  Sex: Female

DRUGS (4)
  1. REVLIMID [Suspect]
     Indication: MYELODYSPLASTIC SYNDROME
     Dosage: 10 MG, 1 IN 28 D, PO
     Route: 048
     Dates: start: 20120621
  2. OMEGA 3 (FISH OIL) (UNKNOWN) [Concomitant]
  3. LEVOXYL (LEVOTHYROXINE SODIUM) (UNKNOWN) [Concomitant]
  4. ZOCOR (UNKNOWN) [Concomitant]

REACTIONS (7)
  - Fatigue [None]
  - Asthenia [None]
  - Diarrhoea [None]
  - Arthralgia [None]
  - Headache [None]
  - Feeling abnormal [None]
  - Infection [None]
